FAERS Safety Report 9602101 (Version 1)
Quarter: 2013Q4

REPORT INFORMATION
  Report Type: Spontaneous
  Country: US (occurrence: None)
  Receive Date: 20131004
  Receipt Date: 20131004
  Transmission Date: 20140711
  Serious: No
  Sender: FDA-Public Use
  Company Number: None

PATIENT
  Age: 66 Year
  Sex: Female

DRUGS (10)
  1. LETAIRIS [Suspect]
     Indication: PULMONARY HYPERTENSION
     Route: 048
  2. REVATIO [Concomitant]
  3. ASPIRIN [Concomitant]
  4. LASIX [Concomitant]
  5. K-TAB [Concomitant]
  6. DIGOXIN SPIRONOLACTONE [Concomitant]
  7. LIPITOR [Concomitant]
  8. PROAIR [Concomitant]
  9. SPIRIVA [Concomitant]
  10. FLONASE [Concomitant]

REACTIONS (2)
  - Local swelling [None]
  - Drug intolerance [None]
